FAERS Safety Report 8310500-X (Version None)
Quarter: 2012Q2

REPORT INFORMATION
  Report Type: 
  Country: None (occurrence: None)
  Receive Date: 20120425
  Receipt Date: 20120419
  Transmission Date: 20120825
  Serious: Yes (Hospitalization)
  Sender: FDA-Public Use
  Company Number: ES-B.I. PHARMACEUTICALS,INC./RIDGEFIELD-2012-ES-00175ES

PATIENT
  Age: 29 Year
  Sex: Male

DRUGS (4)
  1. IBUPROFEN [Suspect]
     Indication: PAIN
     Route: 048
     Dates: start: 20090416, end: 20090420
  2. AUGMENTIN XR [Suspect]
     Indication: BACTERIAL INFECTION
     Dosage: 1000 / 62.5 MG
     Route: 048
     Dates: start: 20090416, end: 20090420
  3. VIRAMUNE [Suspect]
     Indication: ASYMPTOMATIC HIV INFECTION
     Route: 048
     Dates: start: 20090414, end: 20090424
  4. EMTRICITABINE AND TENOFOVIR DISOPROXIL FUMARATE [Suspect]
     Indication: HIV INFECTION
     Route: 048
     Dates: start: 20090414, end: 20090424

REACTIONS (8)
  - EAR PAIN [None]
  - HEADACHE [None]
  - INFECTION [None]
  - PYREXIA [None]
  - TOXIC SKIN ERUPTION [None]
  - ERYTHEMA [None]
  - MIGRAINE [None]
  - RASH GENERALISED [None]
